FAERS Safety Report 7285490-1 (Version None)
Quarter: 2011Q1

REPORT INFORMATION
  Report Type: 
  Country: None (occurrence: None)
  Receive Date: 20110210
  Receipt Date: 20110202
  Transmission Date: 20110831
  Serious: Yes (Death)
  Sender: FDA-Public Use
  Company Number: US-SANOFI-AVENTIS-2011SA001054

PATIENT
  Age: 57 Year
  Sex: Male
  Weight: 94.35 kg

DRUGS (6)
  1. PLAVIX [Suspect]
     Indication: STENT PLACEMENT
     Route: 048
     Dates: start: 20101128, end: 20101214
  2. METRONIDAZOLE [Concomitant]
     Indication: INFECTION
     Route: 048
     Dates: start: 20101207, end: 20101214
  3. AVANDAMET [Concomitant]
     Indication: TYPE 2 DIABETES MELLITUS
     Dosage: 4/1000 MG TABLET TWICE DAILY
     Route: 048
     Dates: start: 20070101, end: 20101214
  4. METOPROLOL [Concomitant]
     Indication: BLOOD PRESSURE
     Route: 048
     Dates: start: 20101204, end: 20101214
  5. ACETYLSALICYLIC ACID [Concomitant]
     Route: 048
     Dates: start: 20101128, end: 20101214
  6. CIPROFLOXACIN HYDROCHLORIDE [Concomitant]
     Indication: INFECTION
     Route: 048
     Dates: start: 20101207, end: 20101214

REACTIONS (1)
  - ARRHYTHMIA [None]
